FAERS Safety Report 10311322 (Version 1)
Quarter: 2014Q3

REPORT INFORMATION
  Report Type: Spontaneous
  Country: FR (occurrence: FR)
  Receive Date: 20140717
  Receipt Date: 20140717
  Transmission Date: 20150326
  Serious: Yes (Death, Hospitalization)
  Sender: FDA-Public Use
  Company Number: FR-BAYER-2014-101790

PATIENT
  Age: 71 Year
  Sex: Male

DRUGS (11)
  1. ISENTRESS [Suspect]
     Active Substance: RALTEGRAVIR POTASSIUM
     Dosage: 400 MG, BID
     Route: 048
     Dates: start: 20070115, end: 20131027
  2. ABSTRAL [Suspect]
     Active Substance: FENTANYL CITRATE
     Route: 060
  3. KARDEGIC [Suspect]
     Active Substance: ASPIRIN LYSINE
     Route: 048
  4. IZILOX [Suspect]
     Active Substance: MOXIFLOXACIN HYDROCHLORIDE
     Indication: ATYPICAL MYCOBACTERIAL INFECTION
     Dosage: 400 MG, QD
     Route: 048
     Dates: start: 20131008, end: 20131027
  5. MYAMBUTOL [Suspect]
     Active Substance: ETHAMBUTOL HYDROCHLORIDE
     Route: 065
  6. ZECLAR [Suspect]
     Active Substance: CLARITHROMYCIN
     Route: 048
  7. LAROXYL [Suspect]
     Active Substance: AMITRIPTYLINE
     Route: 065
  8. DUROGESIC [Suspect]
     Active Substance: FENTANYL
     Route: 062
  9. INTELENCE [Suspect]
     Active Substance: ETRAVIRINE
     Dosage: 200 MG, BID
     Route: 048
     Dates: start: 20060308, end: 20131027
  10. MECIR [Suspect]
     Active Substance: TAMSULOSIN HYDROCHLORIDE
     Route: 048
  11. VERSATIS [Suspect]
     Active Substance: LIDOCAINE
     Route: 003

REACTIONS (4)
  - Myocardial infarction [Fatal]
  - Myocarditis [Fatal]
  - Septic shock [Fatal]
  - Cardiac failure acute [Fatal]

NARRATIVE: CASE EVENT DATE: 20131028
